FAERS Safety Report 13697305 (Version 2)
Quarter: 2017Q3

REPORT INFORMATION
  Report Type: Spontaneous
  Country: BG (occurrence: BG)
  Receive Date: 20170628
  Receipt Date: 20170814
  Transmission Date: 20171127
  Serious: Yes (Hospitalization)
  Sender: FDA-Public Use
  Company Number: BG-ASTRAZENECA-2017SE65503

PATIENT
  Age: 61 Year
  Sex: Male

DRUGS (14)
  1. CANDESARTAN. [Suspect]
     Active Substance: CANDESARTAN
     Route: 048
  2. DOXAZOSIN [Concomitant]
     Active Substance: DOXAZOSIN\DOXAZOSIN MESYLATE
     Dosage: 4MGX1/2 TABLET
  3. TORASEMIDE [Concomitant]
     Active Substance: TORSEMIDE
     Dates: start: 201604
  4. CRESTOR [Suspect]
     Active Substance: ROSUVASTATIN CALCIUM
     Route: 048
     Dates: start: 201604
  5. ACETYLSALICYLIC ACID [Concomitant]
     Active Substance: ASPIRIN
  6. GLYCOPYRRONIUM [Concomitant]
     Active Substance: GLYCOPYRRONIUM
     Dosage: 1.0DF UNKNOWN
     Route: 055
  7. CANDESARTAN. [Suspect]
     Active Substance: CANDESARTAN
     Dosage: 0.5DF UNKNOWN
     Route: 048
     Dates: start: 201604
  8. FUROSEMIDE. [Concomitant]
     Active Substance: FUROSEMIDE
  9. SIMVASTATIN. [Concomitant]
     Active Substance: SIMVASTATIN
  10. LEVOTHYROXINE. [Concomitant]
     Active Substance: LEVOTHYROXINE
     Dosage: 50.0UG UNKNOWN
  11. OMEPRAZOLE. [Concomitant]
     Active Substance: OMEPRAZOLE
  12. BETALOC ZOK [Suspect]
     Active Substance: METOPROLOL SUCCINATE
     Route: 048
     Dates: start: 201604
  13. BETALOC ZOK [Suspect]
     Active Substance: METOPROLOL SUCCINATE
     Route: 048
     Dates: start: 201608
  14. ACETYLSALICYLIC ACID [Concomitant]
     Active Substance: ASPIRIN
     Dosage: 1.0DF UNKNOWN
     Dates: start: 201604

REACTIONS (4)
  - Cardiac failure [Unknown]
  - Off label use [Unknown]
  - Angina pectoris [Unknown]
  - Syncope [Unknown]

NARRATIVE: CASE EVENT DATE: 20160418
